FAERS Safety Report 9989537 (Version 1)
Quarter: 2014Q1

REPORT INFORMATION
  Report Type: Report from Study
  Country: US (occurrence: US)
  Receive Date: 20140310
  Receipt Date: 20140310
  Transmission Date: 20141002
  Serious: No
  Sender: FDA-Public Use
  Company Number: US-ABBVIE-13P-163-1129017-00

PATIENT
  Age: 55 Year
  Sex: Male

DRUGS (3)
  1. HUMIRA [Suspect]
     Indication: RHEUMATOID ARTHRITIS
     Dates: start: 20130315
  2. COLCRYS [Concomitant]
     Indication: GOUT
     Dosage: 15 MG DAILY
  3. TYLENOL [Concomitant]
     Indication: PAIN
     Dosage: OVER THE COUNTER PLAIN

REACTIONS (1)
  - Joint swelling [Recovering/Resolving]
